FAERS Safety Report 7373892-4 (Version None)
Quarter: 2011Q1

REPORT INFORMATION
  Report Type: 
  Country: None (occurrence: None)
  Receive Date: 20110325
  Receipt Date: 20110317
  Transmission Date: 20110831
  Serious: Yes (Other)
  Sender: FDA-Public Use
  Company Number: US-PFIZER INC-2010172730

PATIENT
  Sex: Male

DRUGS (1)
  1. CHANTIX [Suspect]
     Indication: SMOKING CESSATION THERAPY
     Dosage: 0.5 MG TO 1.0 MG, UNK
     Dates: start: 20070501, end: 20080201

REACTIONS (4)
  - ANXIETY [None]
  - DEPRESSION [None]
  - AGGRESSION [None]
  - AGITATION [None]
